FAERS Safety Report 23965354 (Version 1)
Quarter: 2024Q2

REPORT INFORMATION
  Report Type: Spontaneous
  Country: US (occurrence: US)
  Receive Date: 20240612
  Receipt Date: 20240612
  Transmission Date: 20240715
  Serious: No
  Sender: FDA-Public Use
  Company Number: US-BEIGENE-BGN-2024-008333

PATIENT

DRUGS (1)
  1. BRUKINSA [Suspect]
     Active Substance: ZANUBRUTINIB
     Indication: Waldenstrom^s macroglobulinaemia
     Dosage: 160 MILLIGRAM (2 CAPSULES), QD
     Route: 065

REACTIONS (3)
  - Wound secretion [Not Recovered/Not Resolved]
  - Contusion [Not Recovered/Not Resolved]
  - Stasis dermatitis [Not Recovered/Not Resolved]
